FAERS Safety Report 24063650 (Version 1)
Quarter: 2024Q3

REPORT INFORMATION
  Report Type: Spontaneous
  Country: GB (occurrence: GB)
  Receive Date: 20240709
  Receipt Date: 20240709
  Transmission Date: 20241016
  Serious: Yes (Other)
  Sender: ORGANON
  Company Number: None

PATIENT
  Age: 7 Year
  Sex: Female
  Weight: 29 kg

DRUGS (1)
  1. MONTELUKAST SODIUM [Suspect]
     Active Substance: MONTELUKAST SODIUM
     Indication: Asthma
     Dosage: 5MG ONCE A DAY AT NIGHT
     Dates: start: 20240408, end: 20240429

REACTIONS (5)
  - Anxiety [Recovered/Resolved]
  - Sleep terror [Recovered/Resolved]
  - Initial insomnia [Recovered/Resolved]
  - Hallucination [Recovered/Resolved]
  - Emotional distress [Unknown]

NARRATIVE: CASE EVENT DATE: 20240410
